FAERS Safety Report 9156024 (Version 4)
Quarter: 2013Q3

REPORT INFORMATION
  Report Type: Spontaneous
  Country: US (occurrence: US)
  Receive Date: 20130311
  Receipt Date: 20130828
  Transmission Date: 20140515
  Serious: Yes (Other)
  Sender: FDA-Public Use
  Company Number: US-009507513-1303USA002365

PATIENT
  Age: 38 Year
  Sex: Female
  Weight: 83.45 kg

DRUGS (7)
  1. NASONEX [Suspect]
     Indication: RHINITIS ALLERGIC
  2. OXYCODONE [Concomitant]
     Indication: BACK PAIN
     Dosage: DAILY
     Route: 048
  3. HYDROXYZINE [Concomitant]
  4. OXYCONTIN [Concomitant]
  5. FEXOFENADINE HYDROCHLORIDE [Concomitant]
  6. UNISOM (DOXYLAMINE SUCCINATE) [Concomitant]
     Indication: SLEEP DISORDER
     Dosage: UNK
  7. OMEPRAZOLE [Concomitant]
     Indication: GASTRITIS
     Dosage: 20 MG, QD
     Route: 048

REACTIONS (4)
  - Abortion spontaneous [Recovered/Resolved]
  - Exposure during pregnancy [Recovered/Resolved]
  - Uterine haemorrhage [Unknown]
  - Uterine spasm [Unknown]
